FAERS Safety Report 14304459 (Version 1)
Quarter: 2017Q4

REPORT INFORMATION
  Report Type: Spontaneous
  Country: JP (occurrence: JP)
  Receive Date: 20171219
  Receipt Date: 20171219
  Transmission Date: 20180321
  Serious: Yes (Hospitalization)
  Sender: FDA-Public Use
  Company Number: JP-OTSUKA-005012

PATIENT
  Age: 18 Year
  Sex: Male
  Weight: 76.1 kg

DRUGS (5)
  1. OPC-14597 [Suspect]
     Active Substance: CILOSTAZOL
     Indication: DEPRESSION
     Dosage: 3 MG, QD
     Route: 048
     Dates: start: 20081030, end: 20081110
  2. JZOLOFT [Concomitant]
     Active Substance: SERTRALINE HYDROCHLORIDE
     Indication: DEPRESSION
     Dosage: 37.5 MG, QD
     Route: 048
     Dates: start: 20070530, end: 20081117
  3. OPC-14597 [Suspect]
     Active Substance: CILOSTAZOL
     Dosage: 3 MG, BID
     Route: 048
     Dates: start: 20081111, end: 20081117
  4. DEPAS [Concomitant]
     Active Substance: ETIZOLAM
     Indication: DEPRESSION
     Dosage: 0.5 MG, QD
     Route: 048
     Dates: start: 20070224, end: 20081117
  5. SERTRALINE [Concomitant]
     Active Substance: SERTRALINE HYDROCHLORIDE
     Dosage: FORMULATION: TABLETS  STRENGTH: 25MG
     Route: 048
     Dates: start: 20070530, end: 20081117

REACTIONS (1)
  - Eosinophilic pneumonia [Recovered/Resolved]

NARRATIVE: CASE EVENT DATE: 20081118
